FAERS Safety Report 15090905 (Version 1)
Quarter: 2018Q2

REPORT INFORMATION
  Report Type: Spontaneous
  Country: US (occurrence: US)
  Receive Date: 20180629
  Receipt Date: 20180629
  Transmission Date: 20180711
  Serious: No
  Sender: FDA-Public Use
  Company Number: US-AMGEN-USASP2011021256

PATIENT
  Age: 77 Year
  Sex: Female
  Weight: 105.22 kg

DRUGS (15)
  1. PROLIA [Suspect]
     Active Substance: DENOSUMAB
     Indication: OSTEOPOROSIS
     Dosage: 60 MG, Q6MO
     Dates: start: 20101230
  2. PHOSLO [Concomitant]
     Active Substance: CALCIUM ACETATE
  3. MICARDIS [Concomitant]
     Active Substance: TELMISARTAN
     Dosage: 80 MG, QD
     Route: 048
     Dates: start: 20110110
  4. K-DUR [Concomitant]
     Active Substance: POTASSIUM CHLORIDE
     Dosage: 20 MEQ, QD
     Route: 048
  5. LASIX [Concomitant]
     Active Substance: FUROSEMIDE
     Dosage: 20 MG, QD
     Dates: start: 20110123
  6. PLAVIX [Concomitant]
     Active Substance: CLOPIDOGREL BISULFATE
  7. GLUCOPHAGE                         /00082701/ [Concomitant]
     Dosage: 500 MG, BID
     Dates: start: 20110329
  8. ALPRAZOLAM. [Concomitant]
     Active Substance: ALPRAZOLAM
     Dosage: .25 UNK, TID
     Route: 048
  9. LESCOL XL [Concomitant]
     Active Substance: FLUVASTATIN SODIUM
     Dosage: 80 MG, QD
     Route: 048
     Dates: start: 20110110
  10. CALCIUM 500+D [Concomitant]
     Active Substance: CALCIUM\VITAMIN D
     Dosage: UNK UNK, TID
     Dates: start: 20050609
  11. COMBIVENT [Concomitant]
     Active Substance: ALBUTEROL SULFATE\IPRATROPIUM BROMIDE
     Dosage: UNK UNK, PRN
  12. DIFLUCAN [Concomitant]
     Active Substance: FLUCONAZOLE
     Dosage: 150 MG, UNK
     Dates: start: 20100113
  13. VERELAN [Concomitant]
     Active Substance: VERAPAMIL HYDROCHLORIDE
     Dosage: 360 MG, QD
     Route: 048
     Dates: start: 20110110
  14. LEVEMIR [Concomitant]
     Active Substance: INSULIN DETEMIR
     Dosage: 100 IU, QD
     Route: 058
     Dates: start: 20110329
  15. DRUG USED IN DIABETES [Concomitant]
     Active Substance: UNSPECIFIED INGREDIENT

REACTIONS (3)
  - Upper respiratory tract infection [Recovered/Resolved]
  - Sinusitis [Recovering/Resolving]
  - Cough [Recovered/Resolved]

NARRATIVE: CASE EVENT DATE: 20110109
